FAERS Safety Report 11515742 (Version 1)
Quarter: 2015Q3

REPORT INFORMATION
  Report Type: Spontaneous
  Country: US (occurrence: US)
  Receive Date: 20150916
  Receipt Date: 20150916
  Transmission Date: 20151125
  Serious: No
  Sender: FDA-Public Use
  Company Number: CHPA2015US010874

PATIENT
  Age: 84 Year
  Sex: Male

DRUGS (1)
  1. VOLTAREN [Suspect]
     Active Substance: DICLOFENAC SODIUM
     Indication: NERVE INJURY
     Dosage: 2 G, QD
     Route: 061
     Dates: start: 201509

REACTIONS (5)
  - Drug administered at inappropriate site [Unknown]
  - Inappropriate schedule of drug administration [Unknown]
  - Incorrect dose administered [Unknown]
  - Drug dispensed to wrong patient [Unknown]
  - Product use issue [Unknown]

NARRATIVE: CASE EVENT DATE: 201509
